FAERS Safety Report 23300999 (Version 1)
Quarter: 2023Q4

REPORT INFORMATION
  Report Type: Spontaneous
  Country: DE (occurrence: DE)
  Receive Date: 20231215
  Receipt Date: 20231215
  Transmission Date: 20240110
  Serious: Yes (Hospitalization)
  Sender: FDA-Public Use
  Company Number: DE-BRISTOL-MYERS SQUIBB COMPANY-2023-072503

PATIENT
  Age: 82 Year
  Sex: Male
  Weight: 67 kg

DRUGS (13)
  1. FLUOROURACIL [Suspect]
     Active Substance: FLUOROURACIL
     Indication: Gastric cancer
     Dosage: 4536 MG, Q3W
     Route: 042
     Dates: start: 20230320
  2. OXALIPLATIN [Suspect]
     Active Substance: OXALIPLATIN
     Indication: Gastric cancer
     Dosage: 158 MG, Q3W
     Route: 042
     Dates: start: 20230320
  3. OPDIVO [Suspect]
     Active Substance: NIVOLUMAB
     Indication: Gastric cancer
     Dosage: 240 MG, Q3W
     Route: 042
     Dates: start: 20230320
  4. DEXAMETHASONE [Concomitant]
     Active Substance: DEXAMETHASONE
     Indication: Gastric cancer
     Dosage: 4 MG, QW
     Route: 048
     Dates: start: 20230319
  5. Enoxaparin ledraxen [Concomitant]
     Indication: Product used for unknown indication
     Dosage: 4000 DF, QD
     Route: 030
     Dates: end: 20230311
  6. FOLIC ACID [Concomitant]
     Active Substance: FOLIC ACID
     Indication: Prophylaxis
     Dosage: 5 MG, QD
     Route: 048
  7. LEUCOVORIN [Concomitant]
     Active Substance: LEUCOVORIN\LEUCOVORIN CALCIUM
     Indication: Gastric cancer
     Dosage: 745 MG, QW
     Route: 042
     Dates: start: 20230320
  8. FRESUBIN PROTEIN ENERGY [Concomitant]
     Indication: Prophylaxis
     Dosage: 200 DF
     Route: 048
     Dates: start: 20230320
  9. HYDROCHLOROTHIAZIDE [Concomitant]
     Active Substance: HYDROCHLOROTHIAZIDE
     Indication: Product used for unknown indication
     Dosage: 12 MG, QD
     Route: 048
  10. INNOHEP [Concomitant]
     Active Substance: TINZAPARIN SODIUM
     Indication: Gastric cancer
     Dosage: 12000 I.E
     Route: 058
     Dates: start: 20230320, end: 20230530
  11. LOPERAMIDE [Concomitant]
     Active Substance: LOPERAMIDE
     Indication: Prophylaxis
     Dosage: 2 MG, QD
     Route: 048
     Dates: start: 20230328, end: 20230329
  12. NEBIVOLOL [Concomitant]
     Active Substance: NEBIVOLOL
     Indication: Product used for unknown indication
     Dosage: 5 MG, QD
     Route: 048
  13. ONDANSETRON [Concomitant]
     Active Substance: ONDANSETRON
     Indication: Gastric cancer
     Dosage: 8 MG
     Route: 048
     Dates: start: 20230320

REACTIONS (4)
  - Renal failure [Recovered/Resolved]
  - Diarrhoea [Recovered/Resolved]
  - Off label use [Unknown]
  - Pain [Recovering/Resolving]

NARRATIVE: CASE EVENT DATE: 20230503
